FAERS Safety Report 26133296 (Version 1)
Quarter: 2025Q4

REPORT INFORMATION
  Report Type: Spontaneous
  Country: US (occurrence: US)
  Receive Date: 20251209
  Receipt Date: 20251209
  Transmission Date: 20260118
  Serious: Yes (Life-Threatening, Hospitalization, Other)
  Sender: ADVANZ PHARMA
  Company Number: US-MLMSERVICE-20251121-PI722415-00270-1

PATIENT

DRUGS (1)
  1. PREDNISOLONE [Suspect]
     Active Substance: PREDNISOLONE
     Indication: Bursitis
     Dosage: UNK
     Route: 048

REACTIONS (5)
  - Respiratory failure [Unknown]
  - Acute kidney injury [Unknown]
  - Catecholamine crisis [Unknown]
  - Adrenal haemorrhage [Unknown]
  - Phaeochromocytoma crisis [Unknown]
